FAERS Safety Report 5516917-0 (Version None)
Quarter: 2007Q4

REPORT INFORMATION
  Report Type: 
  Country: None (occurrence: None)
  Receive Date: 20071114
  Receipt Date: 20070601
  Transmission Date: 20080405
  Serious: No
  Sender: FDA-Public Use
  Company Number: A0653625A

PATIENT
  Age: 57 Year
  Sex: Male

DRUGS (1)
  1. COMMIT [Suspect]
     Dates: start: 20070523, end: 20070525

REACTIONS (3)
  - MALAISE [None]
  - NAUSEA [None]
  - NERVOUSNESS [None]
